FAERS Safety Report 19704603 (Version 1)
Quarter: 2021Q3

REPORT INFORMATION
  Report Type: Spontaneous
  Country: CN (occurrence: CN)
  Receive Date: 20210816
  Receipt Date: 20210816
  Transmission Date: 20211014
  Serious: Yes (Other)
  Sender: FDA-Public Use
  Company Number: CN-BRISTOL-MYERS SQUIBB COMPANY-BMS-2021-077958

PATIENT
  Age: 62 Year
  Sex: Male
  Weight: 54 kg

DRUGS (2)
  1. OPDIVO [Suspect]
     Active Substance: NIVOLUMAB
     Dosage: 140 MILLIGRAM, Q2WK
     Route: 041
     Dates: start: 20200428, end: 20210805
  2. NORMAL SALINE [Concomitant]
     Active Substance: SODIUM CHLORIDE
     Indication: LUNG NEOPLASM MALIGNANT
     Dosage: 100 MILLILITER, Q2WK
     Route: 041
     Dates: start: 20200428

REACTIONS (3)
  - Thyroglobulin decreased [Unknown]
  - Anti-thyroid antibody positive [Unknown]
  - Blood thyroid stimulating hormone increased [Unknown]

NARRATIVE: CASE EVENT DATE: 20201029
